FAERS Safety Report 9056255 (Version 2)
Quarter: 2013Q2

REPORT INFORMATION
  Report Type: Report from Study
  Country: US (occurrence: US)
  Receive Date: 20130205
  Receipt Date: 20130424
  Transmission Date: 20140414
  Serious: Yes (Other)
  Sender: FDA-Public Use
  Company Number: US-MYLANLABS-2013S1002326

PATIENT
  Age: 18 Year
  Sex: Female

DRUGS (1)
  1. AMNESTEEM CAPSULES [Suspect]
     Dates: start: 20120628, end: 201212

REACTIONS (2)
  - Abortion induced [Recovered/Resolved]
  - Exposure during pregnancy [Recovered/Resolved]
